FAERS Safety Report 23950015 (Version 3)
Quarter: 2024Q4

REPORT INFORMATION
  Report Type: Report from Study
  Country: CA (occurrence: CA)
  Receive Date: 20240607
  Receipt Date: 20241017
  Transmission Date: 20250115
  Serious: Yes (Other)
  Sender: GLAXOSMITHKLINE
  Company Number: CA-GLAXOSMITHKLINE-CA2023077182

PATIENT

DRUGS (5)
  1. MEPOLIZUMAB [Suspect]
     Active Substance: MEPOLIZUMAB
     Indication: Nasal polyps
     Dosage: 100 MG, Q4W
     Route: 058
     Dates: start: 20230424
  2. MEPOLIZUMAB [Suspect]
     Active Substance: MEPOLIZUMAB
     Indication: Asthma
  3. NASONEX [Concomitant]
     Active Substance: MOMETASONE FUROATE
     Indication: Product used for unknown indication
     Dosage: 2 PUFF(S), QD
  4. PULMICORT TURBUHALER [Concomitant]
     Active Substance: BUDESONIDE
     Indication: Product used for unknown indication
     Dosage: UNK, IN SINUS RINSE BO
  5. PREDNISONE [Concomitant]
     Active Substance: PREDNISONE
     Indication: Product used for unknown indication
     Dosage: UNK UNK, QD

REACTIONS (9)
  - Nasal polypectomy [Unknown]
  - Seasonal allergy [Not Recovered/Not Resolved]
  - Ageusia [Not Recovered/Not Resolved]
  - Nasopharyngitis [Unknown]
  - Nasal congestion [Unknown]
  - Anosmia [Not Recovered/Not Resolved]
  - Sleep disorder due to a general medical condition [Unknown]
  - Dry throat [Unknown]
  - Drug ineffective [Unknown]

NARRATIVE: CASE EVENT DATE: 20240531
